FAERS Safety Report 9078269 (Version 1)
Quarter: 2013Q1

REPORT INFORMATION
  Report Type: Report from Study
  Country: US (occurrence: US)
  Receive Date: 20130130
  Receipt Date: 20130130
  Transmission Date: 20140127
  Serious: No
  Sender: FDA-Public Use
  Company Number: US-ABBOTT-12P-163-0964944-00

PATIENT
  Age: 68 Year
  Sex: Male

DRUGS (21)
  1. HUMIRA 40 MG/0.8 ML PEN [Suspect]
     Indication: PSORIASIS
     Dosage: LOADING DOSE
     Dates: start: 201208
  2. ASPIRIN [Concomitant]
     Indication: PROPHYLAXIS
  3. ASPIRIN [Concomitant]
     Dosage: AT BEDTIME
  4. NIASPAN [Concomitant]
     Indication: CORONARY ARTERY DISEASE
  5. JANUMET [Concomitant]
     Indication: DIABETES MELLITUS
  6. ATORVASTATIN [Concomitant]
     Indication: BLOOD CHOLESTEROL INCREASED
     Dosage: 10 MG DAILY, AT BEDTIME
  7. OMEPRAZOLE [Concomitant]
     Indication: DYSPEPSIA
  8. TOPROL [Concomitant]
     Indication: CORONARY ARTERY DISEASE
     Dosage: 50 MG DAILY
  9. AMLODIPINE [Concomitant]
     Indication: CORONARY ARTERY DISEASE
     Dosage: 5 MG DAILY
  10. FENOFIBRATE [Concomitant]
     Indication: CORONARY ARTERY DISEASE
     Dosage: 160 MG DAILY
  11. GLUCOSAMINE SUPPLEMENTS [Concomitant]
     Indication: PRODUCT USED FOR UNKNOWN INDICATION
  12. CHONDROITIN COMPLEX [Concomitant]
     Indication: PRODUCT USED FOR UNKNOWN INDICATION
  13. CALCIUM W/MAGNESIUM/VITAMIN D [Concomitant]
     Indication: PRODUCT USED FOR UNKNOWN INDICATION
  14. VITAMIN C [Concomitant]
     Indication: PRODUCT USED FOR UNKNOWN INDICATION
  15. FOLIC ACID [Concomitant]
     Indication: PRODUCT USED FOR UNKNOWN INDICATION
  16. COQ10 [Concomitant]
     Indication: PRODUCT USED FOR UNKNOWN INDICATION
  17. OMEGA PLAN VITAMIN [Concomitant]
     Indication: PRODUCT USED FOR UNKNOWN INDICATION
  18. MEGA RED FISH OIL [Concomitant]
     Indication: PRODUCT USED FOR UNKNOWN INDICATION
  19. CINNAMON [Concomitant]
     Indication: PRODUCT USED FOR UNKNOWN INDICATION
  20. HUMALOG [Concomitant]
     Indication: PRODUCT USED FOR UNKNOWN INDICATION
  21. LANTUS [Concomitant]
     Indication: DIABETES MELLITUS
     Dosage: 100 U AT BEDTIME

REACTIONS (1)
  - Lacrimation increased [Recovering/Resolving]
